FAERS Safety Report 11460482 (Version 1)
Quarter: 2015Q3

REPORT INFORMATION
  Report Type: Spontaneous
  Country: US (occurrence: US)
  Receive Date: 20150904
  Receipt Date: 20150904
  Transmission Date: 20151125
  Serious: Yes (Hospitalization, Other)
  Sender: FDA-Public Use
  Company Number: PHHY2015US104600

PATIENT
  Age: 45 Year
  Sex: Male

DRUGS (1)
  1. ENOXAPARIN [Suspect]
     Active Substance: ENOXAPARIN
     Indication: DEEP VEIN THROMBOSIS
     Dosage: 40 MG, QD
     Route: 065

REACTIONS (4)
  - Disease progression [Unknown]
  - Haematoma [Recovered/Resolved]
  - Deep vein thrombosis [Recovered/Resolved]
  - Compartment syndrome [Recovered/Resolved]
